FAERS Safety Report 6531298-1 (Version None)
Quarter: 2010Q1

REPORT INFORMATION
  Report Type: 
  Country: None (occurrence: None)
  Receive Date: 20100108
  Receipt Date: 20100104
  Transmission Date: 20100710
  Serious: Yes (Hospitalization)
  Sender: FDA-Public Use
  Company Number: FR-ASTRAZENECA-2010SE00212

PATIENT
  Age: 957 Month
  Sex: Female

DRUGS (8)
  1. CANDESARTAN CILEXETIL/HYDROCHLOROTHIAZIDE (ATACAND HCT) [Suspect]
     Dosage: 8/12.5 MG, 1 TABLET DAILY
     Route: 048
     Dates: end: 20091004
  2. VASTAREL [Suspect]
     Route: 048
     Dates: end: 20091004
  3. NEBILOX [Concomitant]
     Route: 048
  4. KARDEGIC [Concomitant]
     Route: 048
  5. SIMVASTATIN [Concomitant]
     Route: 048
  6. LEVOTHYROXINE SODIUM [Concomitant]
     Route: 048
  7. CYMBALTA [Concomitant]
     Route: 048
     Dates: start: 20090501, end: 20090920
  8. ALPRAZOLAM [Concomitant]
     Route: 048
     Dates: start: 20090501, end: 20090920

REACTIONS (2)
  - FALL [None]
  - HYPONATRAEMIA [None]
